FAERS Safety Report 9380120 (Version 1)
Quarter: 2013Q3

REPORT INFORMATION
  Report Type: Spontaneous
  Country: US (occurrence: None)
  Receive Date: 20130701
  Receipt Date: 20130701
  Transmission Date: 20140515
  Serious: No
  Sender: FDA-Public Use
  Company Number: None

PATIENT
  Age: 70 Year
  Sex: Male

DRUGS (7)
  1. XTANDI 40MG CAPSULE ASTELLAS [Suspect]
     Dosage: TAKE 4 CAPSULES BY MOUTH ONCE DAILY
     Route: 048
  2. REQUIP [Concomitant]
  3. STALEVO [Concomitant]
  4. AMANTADINE [Concomitant]
  5. FLOMAX [Concomitant]
  6. VITAMIN D [Concomitant]
  7. CALCIUM [Concomitant]

REACTIONS (1)
  - Diarrhoea [None]
